FAERS Safety Report 5207890-3 (Version None)
Quarter: 2007Q1

REPORT INFORMATION
  Report Type: 
  Country: None (occurrence: None)
  Receive Date: 20070112
  Receipt Date: 20070102
  Transmission Date: 20070707
  Serious: Yes (Hospitalization)
  Sender: FDA-Public Use
  Company Number: DE-PFIZER INC-A126197

PATIENT
  Sex: Female

DRUGS (4)
  1. ZOLOFT [Interacting]
     Dosage: DAILY DOSE:150MG
     Route: 048
  2. TAFIL [Suspect]
     Dosage: DAILY DOSE:2MG
     Route: 048
  3. APONAL [Interacting]
     Dosage: DAILY DOSE:150MG
     Route: 048
     Dates: start: 20010912, end: 20011003
  4. CANEPHRON [Concomitant]

REACTIONS (4)
  - DRUG EFFECT INCREASED [None]
  - DRUG INTERACTION [None]
  - URINARY RETENTION [None]
  - URINARY TRACT INFECTION [None]
